FAERS Safety Report 10525799 (Version 1)
Quarter: 2014Q4

REPORT INFORMATION
  Report Type: Report from Study
  Country: BR (occurrence: BR)
  Receive Date: 20141017
  Receipt Date: 20141017
  Transmission Date: 20150528
  Serious: Yes (Death, Hospitalization, Other)
  Sender: FDA-Public Use
  Company Number: BR-BAYER-2014-148618

PATIENT
  Age: 71 Year
  Sex: Male
  Weight: 50 kg

DRUGS (3)
  1. NEXAVAR [Suspect]
     Active Substance: SORAFENIB
     Indication: HEPATIC NEOPLASM
     Dosage: 600 MG, QD
     Route: 048
  2. NEXAVAR [Suspect]
     Active Substance: SORAFENIB
     Indication: HEPATIC NEOPLASM
     Dosage: 800 MG, QD
     Route: 048
     Dates: start: 201204
  3. NEXAVAR [Suspect]
     Active Substance: SORAFENIB
     Indication: HEPATIC NEOPLASM
     Dosage: 400 MG, QD
     Route: 048
     Dates: end: 201408

REACTIONS (15)
  - Hepatic failure [Fatal]
  - Diabetes mellitus [Fatal]
  - Encephalopathy [Recovered/Resolved]
  - Extremity necrosis [Not Recovered/Not Resolved]
  - Akinesia [Not Recovered/Not Resolved]
  - Abdominal cavity drainage [None]
  - Depression [Not Recovered/Not Resolved]
  - Encephalopathy [Recovered/Resolved]
  - Purulent discharge [Not Recovered/Not Resolved]
  - Weight decreased [Not Recovered/Not Resolved]
  - Encephalopathy [Recovered/Resolved]
  - Insomnia [Not Recovered/Not Resolved]
  - Peripheral swelling [Not Recovered/Not Resolved]
  - Pain [Not Recovered/Not Resolved]
  - Hypertension [Fatal]

NARRATIVE: CASE EVENT DATE: 20140225
